FAERS Safety Report 5363506-7 (Version None)
Quarter: 2007Q2

REPORT INFORMATION
  Report Type: 
  Country: None (occurrence: None)
  Receive Date: 20070618
  Receipt Date: 20070606
  Transmission Date: 20071010
  Serious: Yes (Hospitalization, Other)
  Sender: FDA-Public Use
  Company Number: 2007SP010277

PATIENT
  Age: 61 Year
  Sex: Male
  Weight: 76 kg

DRUGS (1)
  1. INTRON A [Suspect]
     Indication: MALIGNANT MELANOMA
     Dosage: 38.6 MIU; ; IV
     Route: 042
     Dates: start: 20070101, end: 20070301

REACTIONS (3)
  - DISEASE PROGRESSION [None]
  - LIPASE INCREASED [None]
  - METASTASIS [None]
